FAERS Safety Report 12551084 (Version 1)
Quarter: 2016Q3

REPORT INFORMATION
  Report Type: Spontaneous
  Country: US (occurrence: US)
  Receive Date: 20160713
  Receipt Date: 20160713
  Transmission Date: 20161109
  Serious: No
  Sender: FDA-Public Use
  Company Number: US-AMGEN-USASP2016088260

PATIENT
  Age: 55 Year
  Sex: Female

DRUGS (1)
  1. ENBREL [Suspect]
     Active Substance: ETANERCEPT
     Indication: PSORIATIC ARTHROPATHY
     Dosage: UNK UNK, QWK
     Route: 065

REACTIONS (7)
  - Injection site haemorrhage [Unknown]
  - Injection site reaction [Unknown]
  - Injection site warmth [Unknown]
  - Fear of injection [Unknown]
  - Reaction to drug excipients [Unknown]
  - Injection site pain [Unknown]
  - Nervousness [Unknown]

NARRATIVE: CASE EVENT DATE: 20160605
